FAERS Safety Report 10641124 (Version 1)
Quarter: 2014Q4

REPORT INFORMATION
  Report Type: Spontaneous
  Country: US (occurrence: None)
  Receive Date: 20141208
  Receipt Date: 20141208
  Transmission Date: 20150529
  Serious: Yes (Other)
  Sender: FDA-Public Use
  Company Number: None

PATIENT
  Age: 62 Year
  Sex: Male

DRUGS (6)
  1. ONDANSETRON [Concomitant]
     Active Substance: ONDANSETRON
  2. LIDOCAINE. [Concomitant]
     Active Substance: LIDOCAINE
  3. FENTANYL. [Concomitant]
     Active Substance: FENTANYL
  4. XTANDI [Suspect]
     Active Substance: ENZALUTAMIDE
     Indication: PROSTATE CANCER
     Dosage: 160MG  1X DAILY ORAL
     Route: 048
     Dates: start: 20141125
  5. HYDROMORPHONE [Concomitant]
     Active Substance: HYDROMORPHONE
  6. OXYCODONE [Concomitant]
     Active Substance: OXYCODONE

REACTIONS (5)
  - Metastasis [None]
  - Constipation [None]
  - Pain [None]
  - Nausea [None]
  - Haematuria [None]

NARRATIVE: CASE EVENT DATE: 20141129
